FAERS Safety Report 5975154-6 (Version None)
Quarter: 2008Q4

REPORT INFORMATION
  Report Type: 
  Country: None (occurrence: None)
  Receive Date: 20081202
  Receipt Date: 20080717
  Transmission Date: 20090506
  Serious: Yes (Other)
  Sender: FDA-Public Use
  Company Number: US-ABBOTT-08P-163-0463602-00

PATIENT
  Sex: Female

DRUGS (3)
  1. LUPRON DEPOT [Suspect]
     Indication: ENDOMETRIOSIS
     Route: 030
     Dates: start: 20080501
  2. LUPRON DEPOT [Suspect]
     Dates: start: 20070101, end: 20070101
  3. AGESTIN [Concomitant]
     Indication: BACK DISORDER

REACTIONS (1)
  - PULMONARY EMBOLISM [None]
